FAERS Safety Report 20077822 (Version 1)
Quarter: 2021Q4

REPORT INFORMATION
  Report Type: Spontaneous
  Country: FR (occurrence: FR)
  Receive Date: 20211116
  Receipt Date: 20211116
  Transmission Date: 20220304
  Serious: Yes (Other)
  Sender: FDA-Public Use
  Company Number: None

PATIENT
  Age: 64 Year
  Sex: Female

DRUGS (3)
  1. LANSOPRAZOLE [Interacting]
     Active Substance: LANSOPRAZOLE
     Indication: Prophylaxis against gastrointestinal ulcer
     Dosage: 30 MILLIGRAM
     Route: 048
     Dates: start: 20210807
  2. PRISTINAMYCIN [Interacting]
     Active Substance: PRISTINAMYCIN
     Indication: Pneumonia
     Dosage: 3 GRAM
     Route: 048
     Dates: start: 20210805
  3. PROGRAF [Interacting]
     Active Substance: TACROLIMUS
     Indication: Prophylaxis against transplant rejection
     Dosage: 6.5 MILLIGRAM
     Route: 048
     Dates: start: 20210805

REACTIONS (3)
  - Renal impairment [Recovering/Resolving]
  - Immunosuppressant drug level increased [Recovered/Resolved]
  - Drug interaction [Unknown]

NARRATIVE: CASE EVENT DATE: 20210809
